FAERS Safety Report 7428489-4 (Version None)
Quarter: 2011Q2

REPORT INFORMATION
  Report Type: 
  Country: None (occurrence: None)
  Receive Date: 20110413
  Receipt Date: 20110401
  Transmission Date: 20111010
  Serious: Yes (Hospitalization, Other)
  Sender: FDA-Public Use
  Company Number: 2011020014

PATIENT
  Age: 45 Year
  Sex: Female
  Weight: 81.6475 kg

DRUGS (13)
  1. SOMA [Suspect]
     Indication: FIBROMYALGIA
     Dosage: 1400 MG (350 MG, 4 IN 1 D), ORAL 2100 MG (350 MG, 6 IN 1 D), ORAL
     Route: 048
     Dates: start: 20070101, end: 20100101
  2. SOMA [Suspect]
     Indication: FIBROMYALGIA
     Dosage: 1400 MG (350 MG, 4 IN 1 D), ORAL 2100 MG (350 MG, 6 IN 1 D), ORAL
     Route: 048
     Dates: start: 20100101
  3. BYSTOLIC [Concomitant]
  4. NEXIUM [Concomitant]
  5. LAMICTAL [Concomitant]
  6. PROZAC [Concomitant]
  7. SUBOXONE [Concomitant]
  8. REGLAN [Suspect]
     Indication: GASTROOESOPHAGEAL REFLUX DISEASE
     Dosage: (20 MG, AM), ORAL (10 MG, PM), ORAL
     Route: 048
     Dates: start: 20080501
  9. REGLAN [Suspect]
     Indication: GASTROOESOPHAGEAL REFLUX DISEASE
     Dosage: (20 MG, AM), ORAL (10 MG, PM), ORAL
     Route: 048
     Dates: start: 20080501
  10. ALLEGRA [Concomitant]
  11. MOTRIN [Concomitant]
  12. TOPAMAX [Concomitant]
  13. KLONOPIN [Concomitant]

REACTIONS (17)
  - ATAXIA [None]
  - PANCREATITIS [None]
  - IRRITABILITY [None]
  - DYSPNOEA [None]
  - STARING [None]
  - DRUG ABUSE [None]
  - JAW DISORDER [None]
  - DRUG WITHDRAWAL SYNDROME [None]
  - GASTRIC HYPOMOTILITY [None]
  - SWELLING FACE [None]
  - GAIT DISTURBANCE [None]
  - TREMOR [None]
  - DYSPHAGIA [None]
  - PARKINSON'S DISEASE [None]
  - DYSURIA [None]
  - VISUAL ACUITY REDUCED [None]
  - OEDEMA PERIPHERAL [None]
